FAERS Safety Report 4604786-2 (Version None)
Quarter: 2005Q1

REPORT INFORMATION
  Report Type: 
  Country: None (occurrence: None)
  Receive Date: 20050217
  Receipt Date: 20041208
  Transmission Date: 20050727
  Serious: No
  Sender: FDA-Public Use
  Company Number: S04-USA-07706-01

PATIENT
  Sex: Male

DRUGS (1)
  1. NAMENDA [Suspect]
     Dates: start: 20041203

REACTIONS (2)
  - EYE IRRITATION [None]
  - EYE SWELLING [None]
